FAERS Safety Report 7487465-6 (Version None)
Quarter: 2011Q2

REPORT INFORMATION
  Report Type: 
  Country: None (occurrence: None)
  Receive Date: 20110518
  Receipt Date: 20110511
  Transmission Date: 20111010
  Serious: Yes (Hospitalization)
  Sender: FDA-Public Use
  Company Number: US-TEVA-281436USA

PATIENT
  Age: 53 Year
  Sex: Female

DRUGS (1)
  1. AMOXICILLIN AND CLAVULANATE POTASSIUM TABLETS USP, 875MG/125MG [Suspect]
     Indication: STREPTOCOCCAL INFECTION
     Dosage: 1000 MILLIGRAM;
     Route: 048
     Dates: start: 20110411, end: 20110415

REACTIONS (6)
  - DIARRHOEA [None]
  - LOSS OF CONSCIOUSNESS [None]
  - NAUSEA [None]
  - BODY TEMPERATURE INCREASED [None]
  - WHITE BLOOD CELL COUNT INCREASED [None]
  - ARTHRALGIA [None]
